FAERS Safety Report 9897545 (Version 1)
Quarter: 2014Q1

REPORT INFORMATION
  Report Type: Spontaneous
  Country: CH (occurrence: CH)
  Receive Date: 20140214
  Receipt Date: 20140214
  Transmission Date: 20141002
  Serious: Yes (Hospitalization)
  Sender: FDA-Public Use
  Company Number: CH-BAYER-2014-018611

PATIENT
  Age: 60 Year
  Sex: Male
  Weight: 80 kg

DRUGS (4)
  1. AVALOX [Suspect]
     Dosage: 400 MG, QD
     Route: 048
     Dates: start: 201311, end: 20131124
  2. RASILEZ HCT [Concomitant]
     Dosage: 1 DF, QD
     Route: 048
  3. BECOZYME [Concomitant]
     Dosage: 1 DF, QD
     Route: 048
  4. ANXIOLIT [Concomitant]
     Dosage: 15 MG, QD
     Dates: end: 20131125

REACTIONS (3)
  - Enteritis [Recovered/Resolved]
  - Hypokalaemia [Recovered/Resolved]
  - Hyponatraemia [Recovered/Resolved]
